FAERS Safety Report 8785174 (Version 1)
Quarter: 2012Q4

REPORT INFORMATION
  Report Type: 
  Country: US (occurrence: US)
  Receive Date: 20120914
  Receipt Date: 20120914
  Transmission Date: 20130627
  Serious: Yes (Other)
  Sender: FDA-Public Use
  Company Number: US-JNJFOC-20120904021

PATIENT
  Age: 54 Year
  Sex: Male
  Weight: 79.38 kg

DRUGS (14)
  1. ROGAINE FOR MEN EXTRA STRENGTH [Suspect]
     Route: 061
  2. ROGAINE FOR MEN EXTRA STRENGTH [Suspect]
     Indication: HAIR GROWTH ABNORMAL
     Route: 061
     Dates: start: 20120519, end: 20120906
  3. LYRICA [Suspect]
     Indication: NEURALGIA
     Route: 065
     Dates: start: 20120301, end: 20120830
  4. TYLENOL [Concomitant]
     Indication: PAIN
     Route: 065
  5. TOPAMAX [Concomitant]
     Indication: NEURALGIA
     Route: 065
     Dates: start: 20120904
  6. PRILOSEC [Concomitant]
     Indication: GASTRIC DISORDER
     Route: 065
  7. BENTYL [Concomitant]
     Indication: GASTRIC DISORDER
     Route: 065
  8. LUVOX [Concomitant]
     Indication: DEPRESSION
     Route: 065
     Dates: start: 2002
  9. LIBRIUM [Concomitant]
     Indication: ANXIETY
     Route: 065
     Dates: start: 1995
  10. TESTOSTERONE CYPIONATE [Concomitant]
     Indication: CERVICAL SPINAL STENOSIS
     Route: 065
     Dates: start: 20120328
  11. FLURAZEPAM [Concomitant]
     Indication: SLEEP DISORDER THERAPY
     Route: 065
     Dates: start: 2002
  12. TRUVADA [Concomitant]
     Indication: PROPHYLAXIS AGAINST HIV INFECTION
     Dosage: 200-300 mg
     Route: 065
     Dates: start: 20120608
  13. LASIX [Concomitant]
     Indication: DIURETIC THERAPY
     Route: 065
     Dates: start: 20120907
  14. NORVASC [Concomitant]
     Indication: HYPERTENSION
     Route: 065

REACTIONS (3)
  - Oedema peripheral [Not Recovered/Not Resolved]
  - Pain in extremity [Not Recovered/Not Resolved]
  - Off label use [Recovered/Resolved]
